FAERS Safety Report 4776063-0 (Version None)
Quarter: 2005Q3

REPORT INFORMATION
  Report Type: 
  Country: None (occurrence: None)
  Receive Date: 20050922
  Receipt Date: 20050831
  Transmission Date: 20060218
  Serious: Yes (Other)
  Sender: FDA-Public Use
  Company Number: PHBS2005JP12927

PATIENT
  Age: 73 Year
  Sex: Female

DRUGS (7)
  1. SULPIRIDE [Suspect]
     Indication: DEPRESSION
     Route: 065
  2. LUDIOMIL [Suspect]
     Indication: MAJOR DEPRESSION
     Route: 048
  3. AMITRIPTYLINE HCL [Suspect]
     Route: 065
  4. AMITRIPTYLINE HCL [Suspect]
     Dosage: 200 MG/D
     Route: 065
  5. MIANSERIN [Suspect]
     Route: 065
  6. BROMPERIDOL [Suspect]
     Route: 065
  7. ANAFRANIL [Suspect]
     Indication: MAJOR DEPRESSION
     Dosage: 150 MG/DAY
     Route: 048

REACTIONS (11)
  - CONSTIPATION [None]
  - DELIRIUM [None]
  - DIFFICULTY IN WALKING [None]
  - DIZZINESS [None]
  - DRUG INEFFECTIVE [None]
  - HYPERHIDROSIS [None]
  - MUSCLE RIGIDITY [None]
  - NEUROLEPTIC MALIGNANT SYNDROME [None]
  - TACHYCARDIA [None]
  - TREMOR [None]
  - WHITE BLOOD CELL COUNT INCREASED [None]
